FAERS Safety Report 21768674 (Version 1)
Quarter: 2022Q4

REPORT INFORMATION
  Report Type: Spontaneous
  Country: US (occurrence: None)
  Receive Date: 20221222
  Receipt Date: 20221222
  Transmission Date: 20230112
  Serious: Yes (Hospitalization)
  Sender: FDA-Public Use
  Company Number: None

PATIENT
  Sex: Male
  Weight: 74.7 kg

DRUGS (1)
  1. IRINOTECAN [Suspect]
     Active Substance: IRINOTECAN

REACTIONS (8)
  - Diarrhoea [None]
  - Weight decreased [None]
  - Infusion related reaction [None]
  - Body temperature increased [None]
  - Neutropenia [None]
  - Colitis [None]
  - Gastrointestinal wall thickening [None]
  - Metastases to liver [None]

NARRATIVE: CASE EVENT DATE: 20221128
